FAERS Safety Report 13651786 (Version 1)
Quarter: 2017Q2

REPORT INFORMATION
  Report Type: Spontaneous
  Country: US (occurrence: US)
  Receive Date: 20170614
  Receipt Date: 20170614
  Transmission Date: 20170830
  Serious: No
  Sender: FDA-Public Use
  Company Number: US-SHIRE-US201712998

PATIENT
  Age: 40 Year
  Sex: Female
  Weight: 53.52 kg

DRUGS (4)
  1. VYVANSE [Suspect]
     Active Substance: LISDEXAMFETAMINE DIMESYLATE
     Dosage: 70 MG, 1X/DAY:QD
     Route: 048
  2. MONTELUKAST SODIUM. [Concomitant]
     Active Substance: MONTELUKAST SODIUM
     Indication: SEASONAL ALLERGY
     Dosage: 10 MG, 1X/DAY:QD
     Route: 048
     Dates: start: 2015, end: 20170610
  3. VITAMIN B12 [Concomitant]
     Active Substance: CYANOCOBALAMIN
     Indication: IMMUNE SYSTEM DISORDER
     Dosage: UNK, UNKNOWN
     Route: 065
     Dates: start: 201702, end: 201702
  4. VYVANSE [Suspect]
     Active Substance: LISDEXAMFETAMINE DIMESYLATE
     Indication: ATTENTION DEFICIT/HYPERACTIVITY DISORDER
     Dosage: UNK, UNKNOWN
     Route: 048
     Dates: start: 2016

REACTIONS (19)
  - Emotional distress [Unknown]
  - Therapeutic response unexpected [Not Recovered/Not Resolved]
  - Familial risk factor [Unknown]
  - Influenza [Recovered/Resolved]
  - Streptococcal infection [Recovered/Resolved]
  - Hypersomnia [Recovered/Resolved]
  - Wrong technique in product usage process [Not Recovered/Not Resolved]
  - Malaise [Recovered/Resolved]
  - Stress [Unknown]
  - Abdominal discomfort [Not Recovered/Not Resolved]
  - Drug dose omission [Recovered/Resolved]
  - Gastrointestinal disorder [Recovered/Resolved]
  - Unevaluable event [Recovered/Resolved]
  - Appetite disorder [Unknown]
  - Product quality issue [Not Recovered/Not Resolved]
  - Adverse food reaction [Unknown]
  - Abdominal pain [Recovered/Resolved]
  - Sleep disorder [Not Recovered/Not Resolved]
  - Insomnia [Recovered/Resolved]

NARRATIVE: CASE EVENT DATE: 2016
